FAERS Safety Report 7133069-4 (Version None)
Quarter: 2010Q4

REPORT INFORMATION
  Report Type: 
  Country: None (occurrence: None)
  Receive Date: 20101202
  Receipt Date: 20101123
  Transmission Date: 20110411
  Serious: Yes (Life-Threatening, Hospitalization)
  Sender: FDA-Public Use
  Company Number: B0680764A

PATIENT
  Sex: Female
  Weight: 76 kg

DRUGS (8)
  1. ARIXTRA [Suspect]
     Indication: THROMBOSIS PROPHYLAXIS
     Route: 065
     Dates: start: 20100705, end: 20100712
  2. PREVISCAN [Suspect]
     Indication: THROMBOSIS PROPHYLAXIS
     Route: 048
     Dates: start: 20100705, end: 20100712
  3. SERESTA [Concomitant]
     Indication: DEPRESSION
     Route: 048
  4. LORAZEPAM [Concomitant]
     Indication: DEPRESSION
     Route: 048
  5. EQUANIL [Concomitant]
     Indication: DEPRESSION
     Dosage: 2INJ PER DAY
     Route: 030
  6. TRIATEC [Concomitant]
     Indication: HYPERTENSION
     Dosage: 2.5MG PER DAY
     Route: 048
  7. AMAREL [Concomitant]
     Indication: TYPE 2 DIABETES MELLITUS
     Dosage: 1MG PER DAY
     Route: 048
  8. DILTIAZEM HCL [Concomitant]
     Dosage: 1UNIT PER DAY
     Route: 048

REACTIONS (7)
  - ANAEMIA [None]
  - GASTROINTESTINAL HAEMORRHAGE [None]
  - HYPOTENSION [None]
  - LEUKOCYTOSIS [None]
  - MALAISE [None]
  - MELAENA [None]
  - RENAL FAILURE ACUTE [None]
